FAERS Safety Report 19386540 (Version 1)
Quarter: 2021Q2

REPORT INFORMATION
  Report Type: Spontaneous
  Country: US (occurrence: US)
  Receive Date: 20210607
  Receipt Date: 20210607
  Transmission Date: 20210717
  Serious: No
  Sender: FDA-Public Use
  Company Number: None

PATIENT
  Age: 41 Year
  Sex: Male

DRUGS (1)
  1. IODIXANOL (IODIXANOL 320MG/ML INJ) [Suspect]
     Active Substance: IODIXANOL
     Indication: IMAGING PROCEDURE
     Route: 042
     Dates: start: 20210415, end: 20210415

REACTIONS (5)
  - Nausea [None]
  - Vomiting [None]
  - Hypotension [None]
  - Tachycardia [None]
  - Anaphylactic reaction [None]

NARRATIVE: CASE EVENT DATE: 20210415
